FAERS Safety Report 24095753 (Version 1)
Quarter: 2024Q3

REPORT INFORMATION
  Report Type: Spontaneous
  Country: US (occurrence: None)
  Receive Date: 20240715
  Receipt Date: 20240715
  Transmission Date: 20241017
  Serious: Yes (Hospitalization)
  Sender: Public
  Company Number: None

PATIENT
  Sex: Male

DRUGS (4)
  1. MYCOPHENOLATE MOFETIL [Suspect]
     Active Substance: MYCOPHENOLATE MOFETIL
     Indication: Renal transplant
     Dates: start: 202110
  2. TACROLIMUS (GLENMARK) [Concomitant]
  3. TACROLIMUS (BIOCON) [Concomitant]
  4. TACROLIMUS (ASCEND) [Concomitant]

REACTIONS (5)
  - Chills [None]
  - Pyrexia [None]
  - Nausea [None]
  - Vomiting [None]
  - Sepsis [None]
